FAERS Safety Report 22149966 (Version 1)
Quarter: 2023Q1

REPORT INFORMATION
  Report Type: Spontaneous
  Country: CA (occurrence: CA)
  Receive Date: 20230329
  Receipt Date: 20230329
  Transmission Date: 20230417
  Serious: Yes (Other)
  Sender: FDA-Public Use
  Company Number: CA-002147023-NVSC2023CA068391

PATIENT
  Age: 15 Year
  Sex: Male

DRUGS (8)
  1. RITUXIMAB [Suspect]
     Active Substance: RITUXIMAB
     Indication: Burkitt^s lymphoma
     Dosage: UNK
     Route: 065
  2. TACROLIMUS [Suspect]
     Active Substance: TACROLIMUS
     Indication: Immunosuppression
     Dosage: 1 MG, BID (2 EVERY 1 DAYS)
     Route: 065
  3. MYCOPHENOLATE MOFETIL [Suspect]
     Active Substance: MYCOPHENOLATE MOFETIL
     Indication: Immunosuppression
     Dosage: 300 MG/M2, BID (2 EVERY 1 DAYS)
     Route: 065
  4. PREDNISONE [Suspect]
     Active Substance: PREDNISONE
     Indication: Immunosuppression
     Dosage: 5 MG
     Route: 065
  5. METHYLPREDNISOLONE [Suspect]
     Active Substance: METHYLPREDNISOLONE
     Indication: Immunosuppression
     Dosage: UNK
     Route: 065
  6. METHYLPREDNISOLONE [Suspect]
     Active Substance: METHYLPREDNISOLONE
     Indication: Burkitt^s lymphoma
     Dosage: UNK
     Route: 042
  7. ECULIZUMAB [Suspect]
     Active Substance: ECULIZUMAB
     Indication: Immunosuppression
     Dosage: UNK
     Route: 042
  8. CYCLOPHOSPHAMIDE [Suspect]
     Active Substance: CYCLOPHOSPHAMIDE
     Indication: Burkitt^s lymphoma
     Dosage: UNK
     Route: 065

REACTIONS (4)
  - Epstein-Barr viraemia [Recovered/Resolved]
  - Neutropenia [Recovered/Resolved]
  - Polyomavirus viraemia [Recovered/Resolved]
  - Tumour lysis syndrome [Recovered/Resolved]
